FAERS Safety Report 17901519 (Version 2)
Quarter: 2021Q4

REPORT INFORMATION
  Report Type: Report from Study
  Country: CA (occurrence: CA)
  Receive Date: 20200616
  Receipt Date: 20211228
  Transmission Date: 20220304
  Serious: Yes (Other)
  Sender: FDA-Public Use
  Company Number: CA-PFIZER INC-2020231809

PATIENT
  Age: 68 Year
  Sex: Female

DRUGS (17)
  1. MORPHINE SULFATE [Interacting]
     Active Substance: MORPHINE SULFATE
     Dosage: UNK
     Route: 065
  2. COSENTYX [Interacting]
     Active Substance: SECUKINUMAB
     Indication: Psoriatic arthropathy
     Dosage: 300 MG, WEEKLY
     Route: 058
     Dates: start: 20180618
  3. COSENTYX [Interacting]
     Active Substance: SECUKINUMAB
     Dosage: UNK
     Route: 058
     Dates: start: 20180702
  4. COSENTYX [Interacting]
     Active Substance: SECUKINUMAB
     Dosage: 300 MG, WEEKLY
     Route: 058
     Dates: start: 20180719
  5. COSENTYX [Interacting]
     Active Substance: SECUKINUMAB
     Dosage: 300 MG, MONTHLY
     Route: 058
     Dates: start: 20181016
  6. COSENTYX [Interacting]
     Active Substance: SECUKINUMAB
     Dosage: 300 MG, MONTHLY
     Route: 058
     Dates: start: 20181216
  7. COSENTYX [Interacting]
     Active Substance: SECUKINUMAB
     Dosage: 300 MG, MONTHLY
     Route: 058
     Dates: start: 20190416
  8. COSENTYX [Interacting]
     Active Substance: SECUKINUMAB
     Dosage: 300 MG, MONTHLY
     Route: 058
  9. CELEBREX [Concomitant]
     Active Substance: CELECOXIB
     Dosage: 100 MG, 2X/DAY
  10. CLONAZEPAM [Concomitant]
     Active Substance: CLONAZEPAM
     Dosage: UNK
  11. GABAPENTIN [Concomitant]
     Active Substance: GABAPENTIN
     Dosage: 800 MG
  12. LEFLUNOMIDE [Concomitant]
     Active Substance: LEFLUNOMIDE
     Dosage: UNK
  13. METHOTREXATE [Concomitant]
     Active Substance: METHOTREXATE
     Dosage: UNK
  14. OXYCODONE [Concomitant]
     Active Substance: OXYCODONE
     Dosage: 60 MG, 2X/DAY
  15. PREDNISONE [Concomitant]
     Active Substance: PREDNISONE
     Dosage: UNK
  16. QUININE [Concomitant]
     Active Substance: QUININE
     Dosage: 800 MG
  17. SULFASALAZINE [Concomitant]
     Active Substance: SULFASALAZINE
     Dosage: UNK

REACTIONS (52)
  - Arthritis [Not Recovered/Not Resolved]
  - Blindness unilateral [Unknown]
  - Brain injury [Unknown]
  - Burning sensation [Unknown]
  - Chapped lips [Recovering/Resolving]
  - Cheilitis [Recovering/Resolving]
  - Constipation [Unknown]
  - Depression [Unknown]
  - Device malfunction [Unknown]
  - Drug interaction [Unknown]
  - Fall [Unknown]
  - Limb injury [Unknown]
  - Feeling abnormal [Unknown]
  - Fibromyalgia [Unknown]
  - Fungal infection [Unknown]
  - Gait disturbance [Unknown]
  - Hand deformity [Unknown]
  - Headache [Not Recovered/Not Resolved]
  - Hepatitis C [Unknown]
  - Hyperhidrosis [Unknown]
  - Incorrect dose administered [Unknown]
  - Injection site haemorrhage [Unknown]
  - Joint stiffness [Unknown]
  - Joint swelling [Unknown]
  - Lip disorder [Recovering/Resolving]
  - Lip exfoliation [Not Recovered/Not Resolved]
  - Lip pain [Unknown]
  - Lip swelling [Recovering/Resolving]
  - Illness [Unknown]
  - Memory impairment [Unknown]
  - Musculoskeletal stiffness [Unknown]
  - Nervousness [Unknown]
  - Oral discomfort [Unknown]
  - Oral disorder [Unknown]
  - Oral fungal infection [Unknown]
  - Oral pain [Unknown]
  - Pain [Not Recovered/Not Resolved]
  - Peripheral swelling [Unknown]
  - Pruritus [Unknown]
  - Psoriasis [Not Recovered/Not Resolved]
  - Rash erythematous [Unknown]
  - Rhinorrhoea [Unknown]
  - Skin exfoliation [Unknown]
  - Stenosis [Unknown]
  - Stress [Unknown]
  - Suicidal ideation [Unknown]
  - Therapeutic product effect delayed [Unknown]
  - Tooth loss [Unknown]
  - Tuberculosis [Unknown]
  - Weight decreased [Unknown]
  - Wound [Unknown]
  - Wrong technique in product usage process [Unknown]

NARRATIVE: CASE EVENT DATE: 20180618
